FAERS Safety Report 24195952 (Version 1)
Quarter: 2024Q3

REPORT INFORMATION
  Report Type: Spontaneous
  Country: US (occurrence: None)
  Receive Date: 20240809
  Receipt Date: 20240809
  Transmission Date: 20241016
  Serious: Yes (Life-Threatening, Other)
  Sender: Public
  Company Number: None

PATIENT
  Age: 54 Year
  Sex: Female
  Weight: 55.34 kg

DRUGS (9)
  1. NURTEC ODT [Suspect]
     Active Substance: RIMEGEPANT SULFATE
     Indication: Headache
     Dosage: TOOK 1 PILL ONLY  MAY 1 TABLET / DAY MOUTH ?
     Route: 048
     Dates: start: 20240617, end: 20240617
  2. METOPROLOL [Concomitant]
     Active Substance: METOPROLOL
  3. LEVOTHYROXINE [Concomitant]
     Active Substance: LEVOTHYROXINE\LEVOTHYROXINE SODIUM
  4. METRONIDAZOLE [Concomitant]
     Active Substance: METRONIDAZOLE
  5. CLOPIDOGREL [Concomitant]
     Active Substance: CLOPIDOGREL BISULFATE
  6. ATORVASTATIN [Concomitant]
     Active Substance: ATORVASTATIN
  7. DULOXETINE [Concomitant]
     Active Substance: DULOXETINE
  8. ATORVENT INHALER [Concomitant]
  9. ASPIRIN [Concomitant]
     Active Substance: ASPIRIN

REACTIONS (5)
  - Headache [None]
  - Muscle spasms [None]
  - Eye pain [None]
  - Myalgia [None]
  - Pain [None]

NARRATIVE: CASE EVENT DATE: 20240617
